FAERS Safety Report 4337680-5 (Version None)
Quarter: 2004Q2

REPORT INFORMATION
  Report Type: 
  Country: None (occurrence: None)
  Receive Date: 20040408
  Receipt Date: 20040326
  Transmission Date: 20050107
  Serious: Yes (Hospitalization)
  Sender: FDA-Public Use
  Company Number: 2004-06643

PATIENT
  Age: 49 Year
  Sex: Male

DRUGS (10)
  1. TENOFOVIR DF (TENOFOVIR DISOPROXIL FUMARATE) [Suspect]
     Indication: HIV INFECTION
     Dosage: SEE IMAGE
     Route: 048
     Dates: start: 20031202, end: 20031201
  2. TENOFOVIR DF (TENOFOVIR DISOPROXIL FUMARATE) [Suspect]
     Indication: HIV INFECTION
     Dosage: SEE IMAGE
     Route: 048
     Dates: start: 20040115
  3. LAMIVUDINE (LAMIVUDINE) [Suspect]
     Indication: HIV INFECTION
     Dosage: SEE IMAGE
     Route: 048
     Dates: start: 20031202, end: 20031201
  4. LAMIVUDINE (LAMIVUDINE) [Suspect]
     Indication: HIV INFECTION
     Dosage: SEE IMAGE
     Route: 048
     Dates: start: 20040115
  5. ZIDOVUDINE [Suspect]
     Indication: HIV INFECTION
     Dates: start: 20031202, end: 20031201
  6. VITAMIN B6 [Concomitant]
  7. ETHAMBUTOL HCL [Concomitant]
  8. ISONIAZID [Concomitant]
  9. AMITRIPTYLINE HCL [Concomitant]
  10. ALBENDAZOLE (ALBENDAZOLE) [Concomitant]

REACTIONS (13)
  - ANAEMIA [None]
  - ASTHENIA [None]
  - DEHYDRATION [None]
  - DIARRHOEA [None]
  - MALARIA [None]
  - MEDICATION ERROR [None]
  - MULTIPLE DRUG OVERDOSE [None]
  - PLASMODIUM FALCIPARUM INFECTION [None]
  - SALMONELLOSIS [None]
  - SEPSIS [None]
  - TONGUE COATED [None]
  - TREATMENT NONCOMPLIANCE [None]
  - VOMITING [None]
